FAERS Safety Report 22965983 (Version 3)
Quarter: 2024Q1

REPORT INFORMATION
  Report Type: Spontaneous
  Country: US (occurrence: US)
  Receive Date: 20230921
  Receipt Date: 20240103
  Transmission Date: 20240410
  Serious: Yes (Other)
  Sender: FDA-Public Use
  Company Number: US-TEVA-2023-US-2909247

PATIENT
  Age: 30 Year

DRUGS (1)
  1. CLOZAPINE [Suspect]
     Active Substance: CLOZAPINE
     Indication: Schizophrenia
     Route: 048

REACTIONS (4)
  - Dissociative identity disorder [Unknown]
  - Product use issue [Unknown]
  - Product dose omission issue [Unknown]
  - Hallucination, auditory [Not Recovered/Not Resolved]
